FAERS Safety Report 11693291 (Version 1)
Quarter: 2015Q4

REPORT INFORMATION
  Report Type: Spontaneous
  Country: US (occurrence: None)
  Receive Date: 20151102
  Receipt Date: 20151102
  Transmission Date: 20160304
  Serious: Yes (Other)
  Sender: FDA-Public Use
  Company Number: None

PATIENT
  Age: 50 Year
  Sex: Female
  Weight: 97.07 kg

DRUGS (3)
  1. CLINDAMYCIN [Suspect]
     Active Substance: CLINDAMYCIN\CLINDAMYCIN PHOSPHATE
     Indication: TOOTHACHE
     Dosage: 6X ADAY
     Dates: start: 20151021, end: 20151024
  2. KEPPRA [Concomitant]
     Active Substance: LEVETIRACETAM
  3. BACLAFEN [Concomitant]

REACTIONS (5)
  - Chills [None]
  - Feeling cold [None]
  - Swollen tongue [None]
  - Pain in extremity [None]
  - Back pain [None]

NARRATIVE: CASE EVENT DATE: 20021018
